FAERS Safety Report 14259629 (Version 2)
Quarter: 2018Q1

REPORT INFORMATION
  Report Type: Spontaneous
  Country: IL (occurrence: IL)
  Receive Date: 20171207
  Receipt Date: 20180216
  Transmission Date: 20180508
  Serious: Yes (Death, Hospitalization, Other)
  Sender: FDA-Public Use
  Company Number: IL-IMPAX LABORATORIES, INC-2017-IPXL-03465

PATIENT
  Age: 67 Year
  Sex: Female

DRUGS (4)
  1. CARBIDOPA-LEVODOPA ER [Suspect]
     Active Substance: CARBIDOPA\LEVODOPA
     Dosage: DOSE INCREASED, UNK
     Route: 065
  2. SEROQUEL [Suspect]
     Active Substance: QUETIAPINE FUMARATE
     Indication: SUBSTANCE-INDUCED PSYCHOTIC DISORDER
     Dosage: 12.5 MG, TWICE A DAY
     Route: 065
  3. SEROQUEL [Suspect]
     Active Substance: QUETIAPINE FUMARATE
     Dosage: 25 MG, TWICE A DAY
     Route: 065
  4. CARBIDOPA-LEVODOPA ER [Suspect]
     Active Substance: CARBIDOPA\LEVODOPA
     Indication: PARKINSON^S DISEASE
     Dosage: UNK
     Route: 065

REACTIONS (4)
  - Neuroleptic malignant syndrome [Fatal]
  - Multiple organ dysfunction syndrome [Fatal]
  - Substance-induced psychotic disorder [Recovered/Resolved]
  - Parkinson^s disease [Unknown]
